FAERS Safety Report 6012658-4 (Version None)
Quarter: 2008Q4

REPORT INFORMATION
  Report Type: 
  Country: None (occurrence: None)
  Receive Date: 20081218
  Receipt Date: 20081216
  Transmission Date: 20090506
  Serious: Yes (Other)
  Sender: FDA-Public Use
  Company Number: FR-MERCK-0812FRA00057

PATIENT
  Age: 81 Year
  Sex: Female

DRUGS (9)
  1. JANUVIA [Suspect]
     Indication: TYPE 2 DIABETES MELLITUS
     Route: 048
     Dates: start: 20080301
  2. CANDESARTAN CILEXETIL [Concomitant]
     Indication: HYPERTENSION
     Route: 048
  3. FUROSEMIDE [Concomitant]
     Route: 048
  4. NITROGLYCERIN [Concomitant]
     Route: 061
  5. TRIMETAZIDINE HYDROCHLORIDE [Concomitant]
     Route: 048
  6. ROSUVASTATIN CALCIUM [Concomitant]
     Indication: DYSLIPIDAEMIA
     Route: 048
  7. AMIODARONE HYDROCHLORIDE [Concomitant]
     Route: 048
  8. METFORMIN PAMOATE [Concomitant]
     Indication: TYPE 2 DIABETES MELLITUS
     Route: 048
  9. ASPIRIN AND DIPYRIDAMOLE [Concomitant]
     Route: 048

REACTIONS (3)
  - ANAEMIA [None]
  - MACROCYTOSIS [None]
  - THROMBOCYTOPENIA [None]
